FAERS Safety Report 7555801-8 (Version None)
Quarter: 2011Q2

REPORT INFORMATION
  Report Type: 
  Country: None (occurrence: None)
  Receive Date: 20110618
  Receipt Date: 20110608
  Transmission Date: 20111010
  Serious: Yes (Death, Other)
  Sender: FDA-Public Use
  Company Number: US-BAYER-201041823NA

PATIENT
  Age: 81 Year
  Sex: Male
  Weight: 109 kg

DRUGS (8)
  1. PLAVIX [Concomitant]
  2. VASOTEC [Concomitant]
  3. COREG [Concomitant]
  4. LASIX [Concomitant]
  5. ZOCOR [Concomitant]
  6. TRASYLOL [Suspect]
     Indication: CORONARY ARTERY BYPASS
     Route: 042
     Dates: start: 20060824
  7. ACTOS [Concomitant]
  8. ACETYLSALICYLIC ACID SRT [Concomitant]

REACTIONS (14)
  - STRESS [None]
  - ATRIAL FIBRILLATION [None]
  - MULTI-ORGAN FAILURE [None]
  - RENAL INJURY [None]
  - PAIN [None]
  - RENAL IMPAIRMENT [None]
  - UNEVALUABLE EVENT [None]
  - INJURY [None]
  - DEATH [None]
  - FEAR [None]
  - URINARY TRACT INFECTION [None]
  - RENAL FAILURE [None]
  - EMOTIONAL DISTRESS [None]
  - ANXIETY [None]
